APPROVED DRUG PRODUCT: DESOXIMETASONE
Active Ingredient: DESOXIMETASONE
Strength: 0.05%
Dosage Form/Route: GEL;TOPICAL
Application: A090727 | Product #001 | TE Code: AB
Applicant: EPIC PHARMA LLC
Approved: Mar 10, 2011 | RLD: No | RS: No | Type: RX